FAERS Safety Report 24701226 (Version 2)
Quarter: 2025Q1

REPORT INFORMATION
  Report Type: Spontaneous
  Country: US (occurrence: US)
  Receive Date: 20241205
  Receipt Date: 20250313
  Transmission Date: 20250409
  Serious: Yes (Other)
  Sender: TEVA
  Company Number: US-TEVA-VS-3269815

PATIENT
  Age: 76 Year
  Sex: Female

DRUGS (2)
  1. AUSTEDO XR [Suspect]
     Active Substance: DEUTETRABENAZINE
     Indication: Tardive dyskinesia
     Route: 048
  2. AUSTEDO XR [Suspect]
     Active Substance: DEUTETRABENAZINE
     Indication: Tardive dyskinesia
     Route: 048

REACTIONS (8)
  - Hallucination, auditory [Not Recovered/Not Resolved]
  - Lethargy [Unknown]
  - Adverse drug reaction [Not Recovered/Not Resolved]
  - Somnolence [Unknown]
  - Ear pain [Unknown]
  - Product use in unapproved indication [Unknown]
  - Fall [Unknown]
  - Bruxism [Unknown]

NARRATIVE: CASE EVENT DATE: 20250305
